FAERS Safety Report 7326747-5 (Version None)
Quarter: 2011Q1

REPORT INFORMATION
  Report Type: 
  Country: None (occurrence: None)
  Receive Date: 20110302
  Receipt Date: 20091021
  Transmission Date: 20110831
  Serious: No
  Sender: FDA-Public Use
  Company Number: US-PFIZER INC-2009268121

PATIENT
  Sex: Male

DRUGS (1)
  1. VFEND [Suspect]
     Indication: URINARY TRACT INFECTION FUNGAL

REACTIONS (1)
  - URINARY TRACT INFECTION FUNGAL [None]
